FAERS Safety Report 5891430-X (Version None)
Quarter: 2008Q3

REPORT INFORMATION
  Report Type: 
  Country: None (occurrence: None)
  Receive Date: 20080917
  Receipt Date: 20080917
  Transmission Date: 20090109
  Serious: Yes (Hospitalization)
  Sender: FDA-Public Use
  Company Number: None

PATIENT
  Age: 26 Year
  Sex: Female
  Weight: 69.7632 kg

DRUGS (2)
  1. ROZEREM [Suspect]
     Indication: NIGHTMARE
     Dosage: 8 MG  1 X DAILY  PO (DURATION: 15 DAYS OF THIRTY DAY)
     Route: 048
     Dates: start: 20080902, end: 20080915
  2. ROZEREM [Suspect]
     Indication: SLEEP DISORDER
     Dosage: 8 MG  1 X DAILY  PO (DURATION: 15 DAYS OF THIRTY DAY)
     Route: 048
     Dates: start: 20080902, end: 20080915

REACTIONS (3)
  - IMPAIRED WORK ABILITY [None]
  - MEDICATION ERROR [None]
  - SOMNOLENCE [None]
